FAERS Safety Report 5076310-4 (Version None)
Quarter: 2006Q3

REPORT INFORMATION
  Report Type: 
  Country: None (occurrence: None)
  Receive Date: 20060804
  Receipt Date: 20060726
  Transmission Date: 20061208
  Serious: Yes (Hospitalization, Other)
  Sender: FDA-Public Use
  Company Number: 2006035696

PATIENT
  Age: 32 Year
  Sex: Female

DRUGS (3)
  1. PREDNISOLONE [Suspect]
     Indication: HEART AND LUNG TRANSPLANT
  2. PROGRAF [Suspect]
     Indication: HEART AND LUNG TRANSPLANT
  3. MYCOPHENOLIC ACID [Suspect]
     Indication: HEART AND LUNG TRANSPLANT

REACTIONS (7)
  - BACTERAEMIA [None]
  - BRAIN ABSCESS [None]
  - CARDIAC VALVE VEGETATION [None]
  - ENDOCARDITIS ENTEROCOCCAL [None]
  - HEADACHE [None]
  - RENAL INFARCT [None]
  - SPLENIC INFARCTION [None]
